FAERS Safety Report 16641345 (Version 2)
Quarter: 2021Q4

REPORT INFORMATION
  Report Type: Report from Study
  Country: JP (occurrence: JP)
  Receive Date: 20190729
  Receipt Date: 20211206
  Transmission Date: 20220303
  Serious: Yes (Death, Life-Threatening, Hospitalization, Other)
  Sender: FDA-Public Use
  Company Number: JP-GLAXOSMITHKLINE-JP2019JPN133982

PATIENT
  Age: 8 Decade
  Sex: Male
  Weight: 36 kg

DRUGS (29)
  1. FLUTICASONE FUROATE\VILANTEROL TRIFENATATE [Suspect]
     Active Substance: FLUTICASONE FUROATE\VILANTEROL TRIFENATATE
     Indication: Chronic obstructive pulmonary disease
     Dosage: 100 ?G, QD
     Route: 055
     Dates: start: 20171113
  2. FLUTICASONE FUROATE\VILANTEROL TRIFENATATE [Suspect]
     Active Substance: FLUTICASONE FUROATE\VILANTEROL TRIFENATATE
     Indication: Bronchitis chronic
  3. FLUTICASONE FUROATE\VILANTEROL TRIFENATATE [Suspect]
     Active Substance: FLUTICASONE FUROATE\VILANTEROL TRIFENATATE
     Indication: Emphysema
  4. SPIRIVA RESPIMAT [Concomitant]
     Active Substance: TIOTROPIUM BROMIDE
     Indication: Chronic obstructive pulmonary disease
     Dosage: UNK
  5. SPIRIVA RESPIMAT [Concomitant]
     Active Substance: TIOTROPIUM BROMIDE
     Indication: Bronchitis chronic
  6. SPIRIVA RESPIMAT [Concomitant]
     Active Substance: TIOTROPIUM BROMIDE
     Indication: Emphysema
  7. SULTANOL [Concomitant]
     Active Substance: ALBUTEROL SULFATE
     Indication: Chronic obstructive pulmonary disease
     Dosage: UNK
  8. SULTANOL [Concomitant]
     Active Substance: ALBUTEROL SULFATE
     Indication: Bronchitis chronic
  9. SULTANOL [Concomitant]
     Active Substance: ALBUTEROL SULFATE
     Indication: Emphysema
  10. PREDONINE [Concomitant]
     Active Substance: PREDNISOLONE
     Indication: Chronic obstructive pulmonary disease
     Dosage: UNK
  11. PREDONINE [Concomitant]
     Active Substance: PREDNISOLONE
     Indication: Bronchitis chronic
  12. PREDONINE [Concomitant]
     Active Substance: PREDNISOLONE
     Indication: Emphysema
  13. LAMISIL [Concomitant]
     Active Substance: TERBINAFINE HYDROCHLORIDE
     Dosage: UNK
  14. LULICON OINTMENT [Concomitant]
     Dosage: UNK
  15. SENNOSIDES [Concomitant]
     Active Substance: SENNOSIDES
     Dosage: UNK
  16. BIO-THREE COMBINATION TABLETS [Concomitant]
     Dosage: UNK
  17. AMOXICILLIN [Concomitant]
     Active Substance: AMOXICILLIN
     Dosage: UNK
  18. LAC-B GRANULAR POWDER N [Concomitant]
     Dosage: UNK
  19. PROBIOTICS NOS [Concomitant]
     Active Substance: PROBIOTICS NOS
     Dosage: UNK
  20. PANTETHINE TABLETS [Concomitant]
     Dosage: UNK
  21. MAGMITT TABLET [Concomitant]
     Dosage: UNK
  22. AMITIZA CAPSULE [Concomitant]
     Dosage: UNK
  23. SHINLUCK SOLUTION [Concomitant]
     Dosage: UNK
  24. U-PASTA [Concomitant]
     Dosage: UNK
  25. BUTYLSCOPOLAMINE BROMIDE [Concomitant]
     Active Substance: BUTYLSCOPOLAMINE BROMIDE
     Dosage: UNK
  26. ATARAX P (HYDROXYZINE HYDROCHLORIDE) [Concomitant]
     Indication: Premedication
     Dosage: UNK
  27. ATROPINE SULFATE [Concomitant]
     Active Substance: ATROPINE SULFATE
     Indication: Premedication
     Dosage: UNK
  28. NEXIUM [Concomitant]
     Active Substance: ESOMEPRAZOLE MAGNESIUM
     Dosage: UNK
  29. VASOLAN INJECTION [Concomitant]
     Dosage: UNK

REACTIONS (6)
  - Eating disorder [Fatal]
  - Hypoalbuminaemia [Fatal]
  - Lung adenocarcinoma [Recovering/Resolving]
  - Chronic obstructive pulmonary disease [Recovered/Resolved]
  - Pyrexia [Recovered/Resolved]
  - Hyponatraemia [Recovering/Resolving]

NARRATIVE: CASE EVENT DATE: 20180105
